FAERS Safety Report 13005087 (Version 5)
Quarter: 2017Q1

REPORT INFORMATION
  Report Type: Spontaneous
  Country: US (occurrence: US)
  Receive Date: 20161207
  Receipt Date: 20170307
  Transmission Date: 20170428
  Serious: No
  Sender: FDA-Public Use
  Company Number: US-PFIZER INC-2016562647

PATIENT
  Age: 3 Year
  Sex: Male

DRUGS (3)
  1. CHILDRENS ADVIL [Suspect]
     Active Substance: IBUPROFEN
     Indication: PYREXIA
  2. JUNIOR STRENGTH ADVIL [Suspect]
     Active Substance: IBUPROFEN
     Dosage: UNK
     Dates: start: 20161130
  3. CHILDRENS ADVIL [Suspect]
     Active Substance: IBUPROFEN
     Indication: PAIN
     Dosage: EVERY 8 HOURS AS NEEDED
     Route: 048
     Dates: start: 20161130, end: 20161130

REACTIONS (3)
  - Diarrhoea [Recovered/Resolved]
  - Accidental exposure to product by child [Recovered/Resolved]
  - Malaise [Recovered/Resolved]

NARRATIVE: CASE EVENT DATE: 20161130
